FAERS Safety Report 8119349-4 (Version None)
Quarter: 2012Q1

REPORT INFORMATION
  Report Type: 
  Country: None (occurrence: None)
  Receive Date: 20120203
  Receipt Date: 20120131
  Transmission Date: 20120608
  Serious: Yes (Hospitalization)
  Sender: FDA-Public Use
  Company Number: 2008-178512-NL

PATIENT
  Age: 25 Year
  Sex: Female
  Weight: 49.9 kg

DRUGS (1)
  1. NUVARING [Suspect]
     Indication: PRODUCT USED FOR UNKNOWN INDICATION
     Dosage: VAG
     Route: 067
     Dates: start: 20060601, end: 20060901

REACTIONS (16)
  - LIMB DISCOMFORT [None]
  - CONTUSION [None]
  - LUNG INFILTRATION [None]
  - DEEP VEIN THROMBOSIS [None]
  - DIZZINESS [None]
  - PROCEDURAL COMPLICATION [None]
  - PULMONARY FIBROSIS [None]
  - COAGULOPATHY [None]
  - ATELECTASIS [None]
  - UNEVALUABLE EVENT [None]
  - PULMONARY GRANULOMA [None]
  - HYPERCOAGULATION [None]
  - PULMONARY INFARCTION [None]
  - PULMONARY EMBOLISM [None]
  - PAIN IN EXTREMITY [None]
  - PNEUMONIA [None]
